FAERS Safety Report 8307032-1 (Version None)
Quarter: 2012Q2

REPORT INFORMATION
  Report Type: 
  Country: None (occurrence: None)
  Receive Date: 20120424
  Receipt Date: 20120418
  Transmission Date: 20120825
  Serious: Yes (Other)
  Sender: FDA-Public Use
  Company Number: PHFR2012GB002419

PATIENT
  Sex: Male

DRUGS (2)
  1. CLOZARIL [Suspect]
     Dosage: 300 MG, OD
     Route: 048
  2. CLOZARIL [Suspect]
     Indication: SCHIZOPHRENIA
     Dosage: 400 MG, OD
     Route: 048
     Dates: start: 20030401

REACTIONS (6)
  - RENAL IMPAIRMENT [None]
  - ANTIPSYCHOTIC DRUG LEVEL INCREASED [None]
  - HYPOTENSION [None]
  - ATRIAL FIBRILLATION [None]
  - TROPONIN INCREASED [None]
  - TACHYCARDIA [None]
